FAERS Safety Report 8226770-2 (Version None)
Quarter: 2012Q1

REPORT INFORMATION
  Report Type: 
  Country: None (occurrence: None)
  Receive Date: 20120322
  Receipt Date: 20120317
  Transmission Date: 20120608
  Serious: Yes (Hospitalization)
  Sender: FDA-Public Use
  Company Number: US-BAYER-2011-069216

PATIENT
  Age: 48 Year
  Sex: Female
  Weight: 56.236 kg

DRUGS (2)
  1. YASMIN [Suspect]
     Dosage: UNK
     Dates: start: 20020901, end: 20051201
  2. TRICOR [Concomitant]
     Dosage: 145 MG, UNK
     Route: 048

REACTIONS (5)
  - PAIN [None]
  - PULMONARY EMBOLISM [None]
  - MENTAL DISORDER [None]
  - DEEP VEIN THROMBOSIS [None]
  - INJURY [None]
